FAERS Safety Report 13037114 (Version 4)
Quarter: 2017Q1

REPORT INFORMATION
  Report Type: Spontaneous
  Country: JP (occurrence: JP)
  Receive Date: 20161216
  Receipt Date: 20170223
  Transmission Date: 20170428
  Serious: Yes (Other)
  Sender: FDA-Public Use
  Company Number: JP-009507513-1604JPN013680

PATIENT
  Sex: Female

DRUGS (6)
  1. MYSLEE [Concomitant]
     Active Substance: ZOLPIDEM TARTRATE
     Dosage: UNK UNK, HS
     Route: 048
  2. BELSOMRA [Suspect]
     Active Substance: SUVOREXANT
     Dosage: SOMETIMES 15 MG AND SOMETIMES 20 MG, ABOUT 3~4 TIMES A WEEK
     Route: 048
     Dates: start: 2016
  3. RESTAS [Concomitant]
     Active Substance: FLUTOPRAZEPAM
     Dosage: UNK
     Route: 048
  4. BELSOMRA [Suspect]
     Active Substance: SUVOREXANT
     Dosage: SOMETIMES 15 MG AND SOMETIMES 20 MG, ABOUT 3~4 TIMES A WEEK
     Route: 048
     Dates: start: 2014, end: 2016
  5. RESLIN TABLETS 25 [Suspect]
     Active Substance: TRAZODONE HYDROCHLORIDE
     Dosage: UNK
     Route: 048
     Dates: start: 20161213
  6. EURODIN (ESTAZOLAM) [Concomitant]
     Dosage: UNK UNK, HS
     Route: 048

REACTIONS (20)
  - Hypnagogic hallucination [Unknown]
  - Feeling abnormal [Unknown]
  - Somnolence [Unknown]
  - Anxiety [Unknown]
  - Asthenia [Unknown]
  - Tremor [Not Recovered/Not Resolved]
  - Panic reaction [Unknown]
  - Middle insomnia [Unknown]
  - Vision blurred [Recovered/Resolved]
  - Visual acuity reduced [Unknown]
  - Dizziness [Not Recovered/Not Resolved]
  - Language disorder [Unknown]
  - Palpitations [Unknown]
  - Heart rate increased [Not Recovered/Not Resolved]
  - Meniere^s disease [Unknown]
  - Oscillopsia [Not Recovered/Not Resolved]
  - Irritability [Unknown]
  - Diplopia [Not Recovered/Not Resolved]
  - Chills [Unknown]
  - Memory impairment [Unknown]

NARRATIVE: CASE EVENT DATE: 2016
